FAERS Safety Report 4692841-0 (Version None)
Quarter: 2005Q2

REPORT INFORMATION
  Report Type: 
  Country: None (occurrence: None)
  Receive Date: 20050617
  Receipt Date: 20050407
  Transmission Date: 20051028
  Serious: Yes (Hospitalization)
  Sender: FDA-Public Use
  Company Number: FR-ROCHE-401306

PATIENT
  Age: 20 Year
  Sex: Female
  Weight: 42 kg

DRUGS (1)
  1. ROACCUTANE [Suspect]
     Indication: ACNE
     Route: 048
     Dates: start: 20041001, end: 20050214

REACTIONS (23)
  - ABDOMINAL PAIN [None]
  - ABDOMINAL PAIN UPPER [None]
  - BLOOD AMYLASE INCREASED [None]
  - BLOOD IRON DECREASED [None]
  - CANDIDIASIS [None]
  - COLITIS [None]
  - DIARRHOEA HAEMORRHAGIC [None]
  - EOSINOPHILIA [None]
  - FREQUENT BOWEL MOVEMENTS [None]
  - HAEMATOCHEZIA [None]
  - HAEMATOCRIT DECREASED [None]
  - HAEMOGLOBIN DECREASED [None]
  - HAEMOGLOBIN INCREASED [None]
  - HAPTOGLOBIN INCREASED [None]
  - INTESTINAL ULCER [None]
  - IRON BINDING CAPACITY TOTAL DECREASED [None]
  - LIPASE INCREASED [None]
  - LYMPHOCYTE PERCENTAGE DECREASED [None]
  - OEDEMA MUCOSAL [None]
  - RECTAL HAEMORRHAGE [None]
  - RED BLOOD CELL COUNT DECREASED [None]
  - TRANSFERRIN DECREASED [None]
  - WEIGHT DECREASED [None]
